FAERS Safety Report 20575166 (Version 2)
Quarter: 2022Q2

REPORT INFORMATION
  Report Type: Other
  Country: CA (occurrence: None)
  Receive Date: 20220310
  Receipt Date: 20220427
  Transmission Date: 20220721
  Serious: Yes (Hospitalization)
  Sender: FDA-Public Use
  Company Number: CA-ROCHE-3043526

PATIENT
  Age: 46 Year
  Sex: Female

DRUGS (3)
  1. OCREVUS [Suspect]
     Active Substance: OCRELIZUMAB
     Indication: Relapsing-remitting multiple sclerosis
     Dosage: MORE DOSAGE INFORMATION IS 300 MG AT DAY 0 AND 14, THEN 600 MG EVERY 6 MONTH
     Route: 042
     Dates: start: 20201013
  2. LYRICA [Concomitant]
     Active Substance: PREGABALIN
  3. BIOTIN [Concomitant]
     Active Substance: BIOTIN

REACTIONS (6)
  - COVID-19 [Recovered/Resolved]
  - Urinary tract infection [Recovered/Resolved]
  - Weight increased [Recovered/Resolved]
  - Hunger [Recovered/Resolved]
  - Alopecia [Unknown]
  - COVID-19 [Unknown]

NARRATIVE: CASE EVENT DATE: 20211101
